FAERS Safety Report 9963378 (Version 2)
Quarter: 2014Q1

REPORT INFORMATION
  Report Type: Spontaneous
  Country: US (occurrence: US)
  Receive Date: 20140305
  Receipt Date: 20140305
  Transmission Date: 20141002
  Serious: Yes (Disabling, Other)
  Sender: FDA-Public Use
  Company Number: US-US-EMD SERONO, INC.-430011J07USA

PATIENT
  Age: 56 Year
  Sex: Female
  Weight: 96 kg

DRUGS (3)
  1. NOVANTRONE [Suspect]
     Indication: MULTIPLE SCLEROSIS
     Dates: start: 20020724, end: 20030626
  2. REBIF [Suspect]
     Indication: MULTIPLE SCLEROSIS
  3. SOLUMDEROL [Concomitant]
     Indication: MULTIPLE SCLEROSIS
     Route: 042
     Dates: start: 200011, end: 2001

REACTIONS (1)
  - Congestive cardiomyopathy [Recovering/Resolving]
